FAERS Safety Report 7610349-7 (Version None)
Quarter: 2011Q3

REPORT INFORMATION
  Report Type: 
  Country: None (occurrence: None)
  Receive Date: 20110707
  Receipt Date: 20110622
  Transmission Date: 20111222
  Serious: Yes (Hospitalization)
  Sender: FDA-Public Use
  Company Number: 2010S1000851

PATIENT
  Sex: Male

DRUGS (1)
  1. LIVALO [Suspect]
     Dosage: 2 MG; PO
     Route: 048
     Dates: end: 20101011

REACTIONS (2)
  - TREATMENT NONCOMPLIANCE [None]
  - MYOCARDIAL INFARCTION [None]
